FAERS Safety Report 5279417-1 (Version None)
Quarter: 2007Q1

REPORT INFORMATION
  Report Type: 
  Country: None (occurrence: None)
  Receive Date: 20061213
  Receipt Date: 20060614
  Transmission Date: 20070707
  Serious: No
  Sender: FDA-Public Use
  Company Number: 2006UW12684

PATIENT
  Age: 63 Year
  Sex: Female
  Weight: 108.4 kg

DRUGS (5)
  1. SEROQUEL [Suspect]
     Indication: DEPRESSION
     Dates: start: 20030101
  2. AMITRIPTYLINE HCL [Concomitant]
  3. GABITRIL [Concomitant]
  4. TRILEPTAL [Concomitant]
  5. WELLBUTRIN [Concomitant]

REACTIONS (1)
  - DYSKINESIA [None]
